FAERS Safety Report 17745039 (Version 1)
Quarter: 2020Q2

REPORT INFORMATION
  Report Type: Spontaneous
  Country: US (occurrence: US)
  Receive Date: 20200504
  Receipt Date: 20200504
  Transmission Date: 20200714
  Serious: Yes (Hospitalization)
  Sender: FDA-Public Use
  Company Number: None

PATIENT
  Age: 48 Year
  Sex: Female

DRUGS (1)
  1. AMBRISENTAN 10MG TABLETS 30/BO: 10MG [Suspect]
     Active Substance: AMBRISENTAN
     Indication: PULMONARY ARTERIAL HYPERTENSION
     Route: 048
     Dates: start: 20171205

REACTIONS (7)
  - Iron deficiency anaemia [None]
  - Metastases to liver [None]
  - Abdominal pain [None]
  - Large intestinal ulcer [None]
  - Cough [None]
  - Adenocarcinoma of colon [None]
  - Large intestinal obstruction [None]

NARRATIVE: CASE EVENT DATE: 20200425
